FAERS Safety Report 9054193 (Version 1)
Quarter: 2013Q1

REPORT INFORMATION
  Report Type: Spontaneous
  Country: US (occurrence: US)
  Receive Date: 20130208
  Receipt Date: 20130208
  Transmission Date: 20140127
  Serious: Yes (Other)
  Sender: FDA-Public Use
  Company Number: US-ASTRAZENECA-2013SE05366

PATIENT
  Age: 66 Year
  Sex: Male

DRUGS (5)
  1. BRILINTA [Suspect]
     Indication: ACUTE MYOCARDIAL INFARCTION
     Route: 048
     Dates: start: 201301
  2. HEPARIN [Concomitant]
  3. PLAVIX [Concomitant]
  4. GLYCOPROTEIN 3B2A INHIBITOR [Concomitant]
  5. BABY ASPIRIN [Concomitant]
     Indication: ADJUVANT THERAPY
     Route: 048

REACTIONS (4)
  - Chest pain [Unknown]
  - Convulsion [Recovered/Resolved]
  - Central nervous system lesion [Unknown]
  - Musculoskeletal disorder [Recovered/Resolved]
